FAERS Safety Report 13881787 (Version 1)
Quarter: 2017Q3

REPORT INFORMATION
  Report Type: Spontaneous
  Country: AU (occurrence: AU)
  Receive Date: 20170818
  Receipt Date: 20170818
  Transmission Date: 20171127
  Serious: Yes (Other)
  Sender: FDA-Public Use
  Company Number: AU-BRISTOL-MYERS SQUIBB COMPANY-BMS-2017-072384

PATIENT
  Sex: Female

DRUGS (5)
  1. MACU-VISION [Concomitant]
     Active Substance: ASCORBIC ACID\CUPRIC OXIDE\TOCOPHERSOLAN\ZINC OXIDE
     Indication: GLAUCOMA
     Dosage: 1 DF, DAILY
     Route: 065
  2. ELIQUIS [Suspect]
     Active Substance: APIXABAN
     Indication: CEREBROVASCULAR ACCIDENT PROPHYLAXIS
     Dosage: 5 MG, BID
     Route: 048
     Dates: start: 2016
  3. MEGAFOL [Concomitant]
     Active Substance: FOLIC ACID
     Indication: VITAMIN B COMPLEX DEFICIENCY
     Dosage: 1 DF, QD
     Route: 065
  4. METHYL B 12 [Concomitant]
     Indication: VITAMIN B COMPLEX DEFICIENCY
     Dosage: 1 DF, QWK
     Route: 060
  5. ASTAXANTHIN [Concomitant]
     Indication: MACULAR DEGENERATION
     Dosage: 12 MG, UNK
     Route: 065

REACTIONS (1)
  - Thrombosis [Unknown]
